FAERS Safety Report 6834760-7 (Version None)
Quarter: 2010Q3

REPORT INFORMATION
  Report Type: 
  Country: None (occurrence: None)
  Receive Date: 20100712
  Receipt Date: 20070416
  Transmission Date: 20110219
  Serious: No
  Sender: FDA-Public Use
  Company Number: US-PFIZER INC-2007030936

PATIENT
  Sex: Male
  Weight: 84.09 kg

DRUGS (4)
  1. CHANTIX [Suspect]
     Indication: SMOKING CESSATION THERAPY
     Dates: start: 20070101
  2. VALSARTAN [Concomitant]
     Indication: BLOOD PRESSURE
  3. INSULIN [Concomitant]
  4. ACTOS [Concomitant]

REACTIONS (3)
  - COUGH [None]
  - HAEMORRHOIDS [None]
  - INSOMNIA [None]
